FAERS Safety Report 13028646 (Version 4)
Quarter: 2018Q1

REPORT INFORMATION
  Report Type: Report from Study
  Country: US (occurrence: US)
  Receive Date: 20161214
  Receipt Date: 20180103
  Transmission Date: 20180508
  Serious: Yes (Death, Hospitalization)
  Sender: FDA-Public Use
  Company Number: US-ACTELION-A-NJ2015-124466

PATIENT
  Age: 74 Year
  Sex: Female
  Weight: 54.42 kg

DRUGS (5)
  1. ORENITRAM [Suspect]
     Active Substance: TREPROSTINIL
     Indication: PRODUCT USED FOR UNKNOWN INDICATION
     Dosage: UNK
     Route: 065
  2. LOPERAMIDE [Suspect]
     Active Substance: LOPERAMIDE
     Indication: DIARRHOEA
     Route: 065
  3. NIFEDIPINE. [Concomitant]
     Active Substance: NIFEDIPINE
  4. OPSUMIT [Suspect]
     Active Substance: MACITENTAN
     Indication: PULMONARY ARTERIAL HYPERTENSION
     Dosage: 10 MG, QD
     Route: 048
     Dates: start: 20150309
  5. ADCIRCA [Concomitant]
     Active Substance: TADALAFIL

REACTIONS (17)
  - Cardiac failure [Fatal]
  - Abdominal discomfort [Unknown]
  - Hypotension [Unknown]
  - Diarrhoea [Unknown]
  - Condition aggravated [Unknown]
  - Headache [Unknown]
  - Malaise [Unknown]
  - Oedema [Unknown]
  - Cough [Unknown]
  - Nasal congestion [Unknown]
  - Constipation [Unknown]
  - Palpitations [Unknown]
  - Palliative care [Unknown]
  - Dyspnoea [Unknown]
  - Nasopharyngitis [Unknown]
  - Dizziness [Unknown]
  - Asthenia [Unknown]

NARRATIVE: CASE EVENT DATE: 201702
